FAERS Safety Report 17102896 (Version 1)
Quarter: 2019Q4

REPORT INFORMATION
  Report Type: Spontaneous
  Country: US (occurrence: US)
  Receive Date: 20191129
  Receipt Date: 20191129
  Transmission Date: 20200122
  Serious: Yes (Hospitalization)
  Sender: FDA-Public Use
  Company Number: None

PATIENT
  Age: 72 Year
  Sex: Male

DRUGS (3)
  1. ENOXAPARIN [Suspect]
     Active Substance: ENOXAPARIN
     Indication: ATRIAL FIBRILLATION
     Route: 058
     Dates: start: 20191029, end: 20191101
  2. ASPIRIN. [Suspect]
     Active Substance: ASPIRIN
     Indication: VASCULAR OPERATION
     Route: 048
     Dates: start: 20191029, end: 20191113
  3. ASPIRIN. [Suspect]
     Active Substance: ASPIRIN
     Indication: CARDIAC OPERATION
     Route: 048
     Dates: start: 20191029, end: 20191113

REACTIONS (6)
  - Pelvic haemorrhage [None]
  - Arterial haemorrhage [None]
  - Abdominal wall haematoma [None]
  - Spontaneous haemorrhage [None]
  - Packed red blood cell transfusion [None]
  - Gastric haemorrhage [None]

NARRATIVE: CASE EVENT DATE: 20191105
